FAERS Safety Report 10076129 (Version 4)
Quarter: 2014Q3

REPORT INFORMATION
  Report Type: Spontaneous
  Country: US (occurrence: US)
  Receive Date: 20140414
  Receipt Date: 20140915
  Transmission Date: 20150326
  Serious: Yes (Hospitalization, Other)
  Sender: FDA-Public Use
  Company Number: US-BAYER-2014-054172

PATIENT
  Age: 20 Year
  Sex: Female
  Weight: 58.96 kg

DRUGS (1)
  1. MIRENA [Suspect]
     Active Substance: LEVONORGESTREL
     Indication: CONTRACEPTION
     Dosage: 20 MCG/24HR, CONT
     Route: 015
     Dates: start: 20080813, end: 200809

REACTIONS (11)
  - Procedural pain [None]
  - Anxiety [None]
  - Haemorrhage [None]
  - Ectopic pregnancy with contraceptive device [None]
  - Drug ineffective [None]
  - Embedded device [None]
  - Injury [None]
  - Medical device pain [None]
  - Depression [None]
  - Post procedural discomfort [None]
  - Genital haemorrhage [None]

NARRATIVE: CASE EVENT DATE: 200809
